FAERS Safety Report 14475040 (Version 2)
Quarter: 2018Q2

REPORT INFORMATION
  Report Type: Report from Study
  Country: US (occurrence: US)
  Receive Date: 20180201
  Receipt Date: 20180416
  Transmission Date: 20180711
  Serious: Yes (Hospitalization)
  Sender: FDA-Public Use
  Company Number: US-ACTELION-A-CH2016-133396

PATIENT
  Age: 64 Year
  Sex: Female
  Weight: 89.36 kg

DRUGS (18)
  1. TADAFIL [Concomitant]
     Dosage: UNK
     Dates: start: 20151030
  2. SPIRONOLACTONE. [Concomitant]
     Active Substance: SPIRONOLACTONE
     Dosage: UNK
     Dates: start: 20160211
  3. CEPHALEXIN. [Concomitant]
     Active Substance: CEPHALEXIN
     Dosage: UNK
     Dates: start: 2014
  4. PROBIOTIC [Concomitant]
     Active Substance: PROBIOTICS NOS
     Dosage: UNK
     Dates: start: 2014
  5. MAGNESIUM OXIDE. [Concomitant]
     Active Substance: MAGNESIUM OXIDE
     Dosage: UNK
     Dates: start: 20160301
  6. MACITENTAN [Suspect]
     Active Substance: MACITENTAN
     Indication: PORTOPULMONARY HYPERTENSION
     Dosage: UNK, QD
     Route: 048
     Dates: start: 20160121, end: 20160318
  7. VITAMIN E [Concomitant]
     Active Substance: .ALPHA.-TOCOPHEROL
     Dosage: UNK
     Dates: start: 2014
  8. XIFAXAN [Concomitant]
     Active Substance: RIFAXIMIN
     Dosage: UNK
     Dates: start: 2014
  9. NOVOLOG [Concomitant]
     Active Substance: INSULIN ASPART
     Dosage: UNK
     Dates: start: 2014
  10. VITAMIN A [Concomitant]
     Active Substance: VITAMIN A
     Dosage: UNK
     Dates: start: 2014
  11. MACITENTAN [Suspect]
     Active Substance: MACITENTAN
     Indication: PORTOPULMONARY HYPERTENSION
     Dosage: UNK, QD
     Route: 048
     Dates: start: 20160121, end: 20160318
  12. DIGOXIN. [Concomitant]
     Active Substance: DIGOXIN
     Dosage: UNK
     Dates: start: 2014
  13. LANTUS [Concomitant]
     Active Substance: INSULIN GLARGINE
     Dosage: UNK
     Dates: start: 2014
  14. WARFARIN [Concomitant]
     Active Substance: WARFARIN
     Dosage: UNK
     Dates: start: 2014
  15. AMBIEN [Concomitant]
     Active Substance: ZOLPIDEM TARTRATE
     Dosage: UNK
     Dates: start: 20160303
  16. LASIX [Concomitant]
     Active Substance: FUROSEMIDE
     Dosage: UNK
     Dates: start: 20160211
  17. PANTOPRAZOLE [Concomitant]
     Active Substance: PANTOPRAZOLE
     Dosage: UNK
     Dates: start: 2014
  18. VITAMIN D2 [Concomitant]
     Active Substance: ERGOCALCIFEROL
     Dosage: UNK
     Dates: start: 2014

REACTIONS (18)
  - Fatigue [Recovered/Resolved with Sequelae]
  - Dyspnoea [Recovered/Resolved with Sequelae]
  - Pulmonary arterial hypertension [Recovered/Resolved with Sequelae]
  - Blood urea increased [Unknown]
  - Aspartate aminotransferase increased [Unknown]
  - Asthenia [Recovered/Resolved with Sequelae]
  - Blood creatinine increased [Unknown]
  - Prothrombin time prolonged [Unknown]
  - Drug intolerance [Unknown]
  - Blood bilirubin increased [Unknown]
  - International normalised ratio decreased [Unknown]
  - Condition aggravated [Recovered/Resolved with Sequelae]
  - Exercise tolerance decreased [Unknown]
  - Sinus tachycardia [Unknown]
  - Blood albumin decreased [Unknown]
  - Presyncope [Recovered/Resolved with Sequelae]
  - Insomnia [Unknown]
  - Ammonia increased [Unknown]

NARRATIVE: CASE EVENT DATE: 20160122
